FAERS Safety Report 8606681-0 (Version None)
Quarter: 2012Q3

REPORT INFORMATION
  Report Type: 
  Country: None (occurrence: None)
  Receive Date: 20120820
  Receipt Date: 20120816
  Transmission Date: 20120928
  Serious: Yes (Death, Hospitalization, Other)
  Sender: FDA-Public Use
  Company Number: US-ELI_LILLY_AND_COMPANY-US201205007998

PATIENT
  Sex: Male
  Weight: 70.748 kg

DRUGS (1)
  1. GEMZAR [Suspect]
     Dosage: 1800 MG, OTHER
     Route: 042
     Dates: start: 20120307

REACTIONS (4)
  - NEOPLASM PROGRESSION [None]
  - JOINT SWELLING [None]
  - DECREASED APPETITE [None]
  - HIP FRACTURE [None]
